FAERS Safety Report 21079086 (Version 5)
Quarter: 2022Q3

REPORT INFORMATION
  Report Type: Spontaneous
  Country: US (occurrence: None)
  Receive Date: 20220713
  Receipt Date: 20220826
  Transmission Date: 20221027
  Serious: Yes (Other)
  Sender: FDA-Public Use
  Company Number: 2022A239387

PATIENT
  Age: 804 Month
  Sex: Female
  Weight: 108.4 kg

DRUGS (1)
  1. SYMBICORT [Suspect]
     Active Substance: BUDESONIDE\FORMOTEROL FUMARATE DIHYDRATE
     Indication: Asthma
     Dosage: 1 INHALATION 2 TIMES A DAY
     Route: 055
     Dates: start: 201909

REACTIONS (13)
  - Back pain [Unknown]
  - Asthma [Recovered/Resolved]
  - Nasal congestion [Recovered/Resolved with Sequelae]
  - Wheezing [Unknown]
  - Dyspnoea [Recovered/Resolved with Sequelae]
  - Increased upper airway secretion [Recovered/Resolved with Sequelae]
  - Cough [Unknown]
  - Product dose omission issue [Unknown]
  - Device use issue [Unknown]
  - Intentional product use issue [Unknown]
  - Incorrect dose administered by device [Unknown]
  - Device delivery system issue [Unknown]
  - Wrong technique in device usage process [Unknown]

NARRATIVE: CASE EVENT DATE: 20190901
